FAERS Safety Report 10182649 (Version 1)
Quarter: 2014Q2

REPORT INFORMATION
  Report Type: Spontaneous
  Country: JP (occurrence: None)
  Receive Date: 20140516
  Receipt Date: 20140516
  Transmission Date: 20141212
  Serious: Yes (Other)
  Sender: FDA-Public Use
  Company Number: 2014FR00460

PATIENT
  Age: 80 Year
  Sex: Male

DRUGS (1)
  1. DONEPEZIL [Suspect]

REACTIONS (1)
  - Pleurothotonus [None]
